FAERS Safety Report 7638309-0 (Version None)
Quarter: 2011Q3

REPORT INFORMATION
  Report Type: 
  Country: None (occurrence: None)
  Receive Date: 20110727
  Receipt Date: 20110727
  Transmission Date: 20111222
  Serious: Yes (Other)
  Sender: FDA-Public Use
  Company Number: None

PATIENT
  Age: 33 Year
  Sex: Male
  Weight: 94 kg

DRUGS (1)
  1. ELOXATIN [Suspect]
     Indication: COLON CANCER
     Dosage: 120
     Route: 042
     Dates: start: 20110511, end: 20110726

REACTIONS (4)
  - FLUSHING [None]
  - INFUSION RELATED REACTION [None]
  - CHILLS [None]
  - ABDOMINAL PAIN [None]
